FAERS Safety Report 6623468-9 (Version None)
Quarter: 2010Q1

REPORT INFORMATION
  Report Type: 
  Country: None (occurrence: None)
  Receive Date: 20100305
  Receipt Date: 20100222
  Transmission Date: 20100710
  Serious: Yes (Hospitalization)
  Sender: FDA-Public Use
  Company Number: THQ2010A00551

PATIENT
  Age: 62 Year
  Sex: Female

DRUGS (8)
  1. PIOGLITAZONE HCL [Suspect]
     Indication: TYPE 2 DIABETES MELLITUS
     Dosage: 30 MG (30 MG,1 IN 1 D) PER ORAL
     Route: 048
     Dates: start: 20090422, end: 20091102
  2. SITAGLIPTIN PHOSPHATE (ANTI-DIABETICS) [Suspect]
     Indication: TYPE 2 DIABETES MELLITUS
     Dosage: SEE IMAGE
     Route: 048
     Dates: start: 20090422, end: 20090519
  3. SITAGLIPTIN PHOSPHATE (ANTI-DIABETICS) [Suspect]
     Indication: TYPE 2 DIABETES MELLITUS
     Dosage: SEE IMAGE
     Route: 048
     Dates: start: 20090520, end: 20090805
  4. SITAGLIPTIN PHOSPHATE (ANTI-DIABETICS) [Suspect]
     Indication: TYPE 2 DIABETES MELLITUS
     Dosage: SEE IMAGE
     Route: 048
     Dates: start: 20090808, end: 20091102
  5. PLACEBO BASELINE THERAPY (PLACEBO) [Suspect]
     Dosage: 1 TAB. (1 TAB.,1 IN 1 D) PER ORAL
     Route: 047
     Dates: start: 20090403, end: 20090421
  6. CARBAMAZEPINE [Concomitant]
  7. ACCUZIDE HYDROCHLOROTHIAZIDE, QUINAPRIL HYDROCHLORIDE) [Concomitant]
  8. ACCUPRO (QUINAPRIL HYDROCHLORIDE) [Concomitant]

REACTIONS (6)
  - ANGINA UNSTABLE [None]
  - ATRIAL FIBRILLATION [None]
  - CARDIAC FAILURE [None]
  - CONDITION AGGRAVATED [None]
  - DYSLIPIDAEMIA [None]
  - HYPERTENSION [None]
